FAERS Safety Report 8020046 (Version 3)
Quarter: 2012Q4

REPORT INFORMATION
  Report Type: 
  Country: US (occurrence: US)
  Receive Date: 20110705
  Receipt Date: 20121210
  Transmission Date: 20130627
  Serious: No
  Sender: FDA-Public Use
  Company Number: US-PFIZER INC-2011143578

PATIENT
  Age: 47 Year
  Sex: Female
  Weight: 74 kg

DRUGS (4)
  1. NORPACE [Suspect]
     Indication: ATRIAL FIBRILLATION
     Dosage: 100 mg, 3x/day
     Dates: start: 201104
  2. LORAZEPAM [Concomitant]
     Dosage: UNK
  3. METOPROLOL [Concomitant]
  4. TOPROL [Concomitant]
     Indication: HYPERTROPHIC CARDIOMYOPATHY
     Dosage: 50 mg, 2x/day

REACTIONS (4)
  - Constipation [Unknown]
  - Dysuria [Unknown]
  - Posture abnormal [Not Recovered/Not Resolved]
  - Myalgia [Not Recovered/Not Resolved]
